FAERS Safety Report 7385121-6 (Version None)
Quarter: 2011Q1

REPORT INFORMATION
  Report Type: 
  Country: None (occurrence: None)
  Receive Date: 20110330
  Receipt Date: 20091120
  Transmission Date: 20110831
  Serious: Yes (Other)
  Sender: FDA-Public Use
  Company Number: US-BAYER-200940867NA

PATIENT
  Sex: Male
  Weight: 102.4 kg

DRUGS (23)
  1. SYNTHROID [Concomitant]
     Dosage: 50 MG, UNK
     Route: 048
  2. VERSED [Concomitant]
     Dosage: 10 MG, UNK
     Route: 042
     Dates: start: 20040227
  3. LASIX [Concomitant]
     Dosage: 40 MG, UNK
     Route: 048
  4. ALBUMIN NOS [Concomitant]
     Dosage: 100 ML, UNK
     Route: 042
     Dates: start: 20040226
  5. LIPITOR [Concomitant]
     Dosage: 40 MG, UNK
     Route: 048
  6. COREG [Concomitant]
     Dosage: 25 MG, UNK
     Route: 048
  7. NOVOLOG [Concomitant]
     Dosage: 30 U, BID
     Route: 058
  8. LEVEMIR [Concomitant]
     Dosage: 40 U, BID
     Route: 058
  9. MAGNESIUM SULFATE [Concomitant]
     Dosage: 1 G, UNK
     Route: 042
     Dates: start: 20040227
  10. BENADRYL [Concomitant]
     Dosage: 5 MG, UNK
     Route: 042
     Dates: start: 20040227
  11. FAMOTIDINE [Concomitant]
     Dosage: 40 MG, UNK
     Route: 042
     Dates: start: 20040227
  12. TRASYLOL [Suspect]
     Indication: CORONARY ARTERY BYPASS
     Dosage: UNK
     Route: 042
     Dates: start: 20040226
  13. AMIODARONE HCL [Concomitant]
     Dosage: 200 MG, UNK
     Route: 048
  14. LISINOPRIL [Concomitant]
     Dosage: 10 MG, UNK
     Route: 048
  15. ACETYLSALICYLIC ACID SRT [Concomitant]
     Dosage: 81 MG, UNK
     Route: 048
  16. LASIX [Concomitant]
     Dosage: 40 MG, UNK
     Route: 042
     Dates: start: 20040227
  17. PROTAMINE SULFATE [Concomitant]
     Dosage: 250 MG, UNK
     Route: 042
     Dates: start: 20040227
  18. FENTANYL [Concomitant]
     Dosage: 50 MCG
     Route: 042
     Dates: start: 20040227
  19. GLUCOPHAGE [Concomitant]
     Dosage: 500 MG, BID
     Route: 048
  20. HEPARIN SODIUM [Concomitant]
     Dosage: 33000 U, UNK
     Route: 042
     Dates: start: 20040227
  21. LIDOCAINE [Concomitant]
     Dosage: 100 MG, UNK
     Route: 042
     Dates: start: 20040227
  22. SOLU-MEDROL [Concomitant]
     Dosage: UNK
     Route: 042
     Dates: start: 20040227
  23. BLOOD AND RELATED PRODUCTS [Concomitant]
     Dosage: 4 UNK, UNK
     Route: 042
     Dates: start: 20040226

REACTIONS (11)
  - RENAL INJURY [None]
  - FEAR [None]
  - PAIN [None]
  - DISABILITY [None]
  - UNEVALUABLE EVENT [None]
  - DEPRESSION [None]
  - RENAL FAILURE [None]
  - ANXIETY [None]
  - MULTI-ORGAN FAILURE [None]
  - INJURY [None]
  - ANHEDONIA [None]
